FAERS Safety Report 11217791 (Version 1)
Quarter: 2015Q2

REPORT INFORMATION
  Report Type: Spontaneous
  Country: US (occurrence: None)
  Receive Date: 20150623
  Receipt Date: 20150623
  Transmission Date: 20150821
  Serious: Yes (Hospitalization)
  Sender: FDA-Public Use
  Company Number: UCM201506-000410

PATIENT
  Sex: Female

DRUGS (1)
  1. LAMOTRIGINE. [Suspect]
     Active Substance: LAMOTRIGINE
     Indication: AFFECTIVE DISORDER

REACTIONS (7)
  - Thinking abnormal [None]
  - Fatigue [None]
  - Insomnia [None]
  - Memory impairment [None]
  - Abasia [None]
  - Balance disorder [None]
  - Musculoskeletal disorder [None]

NARRATIVE: CASE EVENT DATE: 201505
